FAERS Safety Report 16197074 (Version 2)
Quarter: 2019Q2

REPORT INFORMATION
  Report Type: Spontaneous
  Country: US (occurrence: US)
  Receive Date: 20190415
  Receipt Date: 20190508
  Transmission Date: 20190711
  Serious: No
  Sender: FDA-Public Use
  Company Number: US-PFIZER INC-2019158593

PATIENT
  Sex: Female
  Weight: 48 kg

DRUGS (2)
  1. ALDACTONE [Concomitant]
     Active Substance: SPIRONOLACTONE
     Indication: ALOPECIA
     Dosage: UNK, 1X/DAY
  2. PREMARIN [Suspect]
     Active Substance: ESTROGENS, CONJUGATED
     Indication: BONE DISORDER
     Dosage: 0.625 MG, 1X/DAY
     Route: 048

REACTIONS (3)
  - Influenza [Recovered/Resolved]
  - Contusion [Unknown]
  - Fall [Recovered/Resolved]
